FAERS Safety Report 10078413 (Version 1)
Quarter: 2014Q2

REPORT INFORMATION
  Report Type: Spontaneous
  Country: US (occurrence: US)
  Receive Date: 20140415
  Receipt Date: 20140415
  Transmission Date: 20141212
  Serious: Yes (Hospitalization)
  Sender: FDA-Public Use
  Company Number: US-SA-2014SA046629

PATIENT
  Age: 19 Year
  Sex: Male
  Weight: 53.6 kg

DRUGS (21)
  1. LUMIZYME [Suspect]
     Indication: GLYCOGEN STORAGE DISEASE TYPE II
     Route: 042
     Dates: start: 20120301
  2. LUMIZYME [Suspect]
     Indication: GLYCOGEN STORAGE DISEASE TYPE II
     Route: 042
     Dates: start: 20120301
  3. ACETAMINOPHEN [Concomitant]
  4. DIPHENHYDRAMINE [Concomitant]
  5. HEPARIN [Concomitant]
  6. LORTAB [Concomitant]
  7. METHYLPREDNISOLONE [Concomitant]
  8. SALINE [Concomitant]
  9. EPIPEN [Concomitant]
  10. XOPENEX [Concomitant]
  11. OXYGEN [Concomitant]
  12. PROMETHAZINE [Concomitant]
  13. PRILOSEC [Concomitant]
  14. KLONOPIN [Concomitant]
  15. AMBIEN [Concomitant]
  16. FUROSEMIDE [Concomitant]
  17. FLEXERIL [Concomitant]
  18. ALBUTEROL [Concomitant]
  19. GENTAMICIN [Concomitant]
  20. HYOSCYAMINE [Concomitant]
  21. TYLENOL [Concomitant]

REACTIONS (1)
  - Tongue disorder [Unknown]
